FAERS Safety Report 20646593 (Version 2)
Quarter: 2022Q1

REPORT INFORMATION
  Report Type: Other
  Country: IT (occurrence: IT)
  Receive Date: 20220329
  Receipt Date: 20220331
  Transmission Date: 20220423
  Serious: Yes (Other)
  Sender: FDA-Public Use
  Company Number: None

PATIENT
  Age: 56 Year
  Sex: Male

DRUGS (3)
  1. PAROXETINE HYDROCHLORIDE [Suspect]
     Active Substance: PAROXETINE HYDROCHLORIDE
     Indication: Drug abuse
     Dosage: UNK
     Route: 065
     Dates: start: 20220213, end: 20220213
  2. HALCION [Suspect]
     Active Substance: TRIAZOLAM
     Indication: Drug abuse
     Dosage: UNK
     Route: 065
     Dates: start: 20220213, end: 20220213
  3. EN [Suspect]
     Active Substance: DELORAZEPAM
     Indication: Drug abuse
     Dosage: UNK
     Route: 065
     Dates: start: 20220213, end: 20220213

REACTIONS (2)
  - Drug abuse [Recovering/Resolving]
  - Sopor [Recovering/Resolving]

NARRATIVE: CASE EVENT DATE: 20220213
